FAERS Safety Report 6641120-0 (Version None)
Quarter: 2010Q1

REPORT INFORMATION
  Report Type: 
  Country: None (occurrence: None)
  Receive Date: 20100318
  Receipt Date: 20090311
  Transmission Date: 20100710
  Serious: No
  Sender: FDA-Public Use
  Company Number: US-ASTRAZENECA-2009UW06296

PATIENT
  Sex: Male

DRUGS (1)
  1. LISINOPRIL [Suspect]
     Route: 048

REACTIONS (1)
  - DRUG INEFFECTIVE [None]
